FAERS Safety Report 17934181 (Version 1)
Quarter: 2020Q2

REPORT INFORMATION
  Report Type: Other
  Country: GB (occurrence: GB)
  Receive Date: 20200624
  Receipt Date: 20200624
  Transmission Date: 20200714
  Serious: Yes (Hospitalization)
  Sender: FDA-Public Use
  Company Number: GB-CELLTRION INC.-2020GB023512

PATIENT

DRUGS (6)
  1. AZATHIOPRINE SODIUM. [Suspect]
     Active Substance: AZATHIOPRINE SODIUM
     Indication: CROHN^S DISEASE
     Dosage: 50 MG
     Route: 048
  2. ANUSOL HC [BENZYL BENZOATE;BISMUTH OXIDE;BISMUTH SUBGALLATE;HYDROCORTI [Concomitant]
  3. FUSIDIC ACID [Concomitant]
     Active Substance: FUSIDIC ACID
  4. SCHERIPROCT [CINCHOCAINE HYDROCHLORIDE;PREDNISOLONE CAPROATE] [Concomitant]
  5. INFLIXIMAB (UNKNOWN) [Suspect]
     Active Substance: INFLIXIMAB
     Indication: CROHN^S DISEASE
     Dosage: 1 DF
     Route: 042
     Dates: start: 20200528
  6. NIFEDIPINE. [Concomitant]
     Active Substance: NIFEDIPINE

REACTIONS (8)
  - COVID-19 [Recovering/Resolving]
  - Lip swelling [Recovering/Resolving]
  - Dysuria [Unknown]
  - Chills [Unknown]
  - Feeling cold [Unknown]
  - COVID-19 pneumonia [Unknown]
  - Rash [Recovering/Resolving]
  - Swelling face [Unknown]

NARRATIVE: CASE EVENT DATE: 20200604
